FAERS Safety Report 9983603 (Version 2)
Quarter: 2014Q1

REPORT INFORMATION
  Report Type: Spontaneous
  Country: US (occurrence: US)
  Receive Date: 20140307
  Receipt Date: 20140307
  Transmission Date: 20141002
  Serious: No
  Sender: FDA-Public Use
  Company Number: US-TEVA-455343USA

PATIENT
  Sex: Male

DRUGS (1)
  1. ETODOLAC [Suspect]
     Dosage: 200
     Dates: start: 20131207

REACTIONS (2)
  - Erythema [Not Recovered/Not Resolved]
  - Rash [Not Recovered/Not Resolved]
